FAERS Safety Report 20030585 (Version 2)
Quarter: 2021Q4

REPORT INFORMATION
  Report Type: Spontaneous
  Country: US (occurrence: US)
  Receive Date: 20211103
  Receipt Date: 20211124
  Transmission Date: 20220303
  Serious: Yes (Other)
  Sender: FDA-Public Use
  Company Number: US-GUERBET-US-20210155

PATIENT
  Age: 58 Year
  Sex: Female

DRUGS (4)
  1. LIPIODOL [Suspect]
     Active Substance: ETHIODIZED OIL
     Indication: Therapeutic embolisation
     Dosage: 4ML OF 3:1 ALCOHOL WITH LIPIODOL
     Route: 013
     Dates: start: 201805, end: 201805
  2. ALCOHOL [Suspect]
     Active Substance: ALCOHOL
     Indication: Therapeutic embolisation
     Dosage: 4ML OF 3:1 ALCOHOL WITH LIPIODOL
     Route: 013
     Dates: start: 201805, end: 201805
  3. ZOCOR [Concomitant]
     Active Substance: SIMVASTATIN
     Indication: Product used for unknown indication
     Route: 065
  4. LEVOTHYROXINE [Concomitant]
     Active Substance: LEVOTHYROXINE
     Indication: Product used for unknown indication
     Route: 065

REACTIONS (3)
  - Nephrolithiasis [Recovered/Resolved]
  - Product residue present [Recovered/Resolved]
  - Product use in unapproved indication [Recovered/Resolved]

NARRATIVE: CASE EVENT DATE: 20200301
